FAERS Safety Report 14669551 (Version 2)
Quarter: 2018Q2

REPORT INFORMATION
  Report Type: Spontaneous
  Country: IT (occurrence: IT)
  Receive Date: 20180322
  Receipt Date: 20180402
  Transmission Date: 20180711
  Serious: Yes (Other)
  Sender: FDA-Public Use
  Company Number: IT-SHIRE-IT201809464

PATIENT
  Age: 0 Day
  Sex: Male
  Weight: 14 kg

DRUGS (2)
  1. ADVATE [Suspect]
     Active Substance: ANTIHEMOPHILIC FACTOR, HUMAN RECOMBINANT
     Indication: HAEMATOMA
     Dosage: 90 MG/KG, UNK
     Route: 065
  2. NOVOSEVEN [Concomitant]
     Active Substance: COAGULATION FACTOR VIIA RECOMBINANT HUMAN
     Indication: HAEMATOMA

REACTIONS (1)
  - Inhibiting antibodies [Unknown]

NARRATIVE: CASE EVENT DATE: 20160926
